FAERS Safety Report 7811066-0 (Version None)
Quarter: 2011Q4

REPORT INFORMATION
  Report Type: 
  Country: None (occurrence: None)
  Receive Date: 20111013
  Receipt Date: 20111011
  Transmission Date: 20120403
  Serious: Yes (Hospitalization, Other)
  Sender: FDA-Public Use
  Company Number: DE-ABBOTT-11P-062-0857109-00

PATIENT
  Sex: Male
  Weight: 65 kg

DRUGS (7)
  1. VALORON N [Concomitant]
     Indication: PRODUCT USED FOR UNKNOWN INDICATION
     Dosage: 20-30 DROPS PER DAY
     Dates: start: 20110822
  2. PARICALCITOL [Suspect]
     Dates: start: 20110510, end: 20110519
  3. PARICALCITOL [Suspect]
     Dates: start: 20110523, end: 20110626
  4. PARICALCITOL [Suspect]
     Dates: start: 20110520, end: 20110522
  5. PARICALCITOL [Suspect]
     Indication: HYPERPARATHYROIDISM SECONDARY
     Route: 042
     Dates: start: 20101119, end: 20110509
  6. PARICALCITOL [Suspect]
     Dates: start: 20110627
  7. AMOXICILLIN AND CLAVULANATE POTASSIUM [Concomitant]
     Indication: PRODUCT USED FOR UNKNOWN INDICATION
     Dosage: 500/125 TWICE PER DAY
     Dates: start: 20110824

REACTIONS (2)
  - POST PROCEDURAL INFECTION [None]
  - NEOPLASM SKIN [None]
